FAERS Safety Report 21131365 (Version 1)
Quarter: 2022Q3

REPORT INFORMATION
  Report Type: Spontaneous
  Country: CA (occurrence: CA)
  Receive Date: 20220726
  Receipt Date: 20220726
  Transmission Date: 20221026
  Serious: Yes (Other)
  Sender: FDA-Public Use
  Company Number: None

PATIENT
  Age: 27 Year
  Sex: Female

DRUGS (5)
  1. METHOTREXATE [Suspect]
     Active Substance: METHOTREXATE
     Indication: Product used for unknown indication
     Route: 058
  2. HYDROXYCHLOROQUINE SULFATE [Concomitant]
     Active Substance: HYDROXYCHLOROQUINE SULFATE
     Dosage: 1 EVERY 1 DAYS
     Route: 048
  3. IMMUNOGLOBULINS [Concomitant]
  4. MYCOPHENOLATE MOFETIL [Concomitant]
     Active Substance: MYCOPHENOLATE MOFETIL
  5. PREDNISONE ACETATE [Concomitant]
     Active Substance: PREDNISONE ACETATE
     Dosage: 1 EVERY 1 DAYS
     Route: 048

REACTIONS (7)
  - Dermatomyositis [Recovered/Resolved]
  - Illness [Recovered/Resolved]
  - Loss of personal independence in daily activities [Recovered/Resolved]
  - Sinusitis [Recovered/Resolved]
  - Tenosynovitis [Recovered/Resolved]
  - Drug ineffective [Unknown]
  - Product use issue [Unknown]
